FAERS Safety Report 6128474-9 (Version None)
Quarter: 2009Q1

REPORT INFORMATION
  Report Type: 
  Country: None (occurrence: None)
  Receive Date: 20090323
  Receipt Date: 20090317
  Transmission Date: 20090719
  Serious: Yes (Other)
  Sender: FDA-Public Use
  Company Number: US-ASTRAZENECA-2009UW06891

PATIENT
  Age: 74 Year
  Sex: Male

DRUGS (1)
  1. CRESTOR [Suspect]
     Route: 048

REACTIONS (1)
  - MYALGIA [None]
